FAERS Safety Report 13589509 (Version 1)
Quarter: 2017Q2

REPORT INFORMATION
  Report Type: Spontaneous
  Country: FR (occurrence: FR)
  Receive Date: 20170529
  Receipt Date: 20170529
  Transmission Date: 20170830
  Serious: Yes (Death)
  Sender: FDA-Public Use
  Company Number: FR-ROCHE-1940750

PATIENT
  Age: 85 Year
  Sex: Male

DRUGS (2)
  1. ACTILYSE [Suspect]
     Active Substance: ALTEPLASE
     Indication: THROMBOLYSIS
     Dosage: 7.5MG + 67MG IN 1 HOUR
     Route: 042
     Dates: start: 20170427
  2. KARDEGIC [Suspect]
     Active Substance: ASPIRIN LYSINE
     Indication: TRANSIENT ISCHAEMIC ATTACK
     Route: 048
     Dates: end: 20170427

REACTIONS (2)
  - Haemorrhagic transformation stroke [Fatal]
  - Rectal haemorrhage [Recovered/Resolved]

NARRATIVE: CASE EVENT DATE: 20170427
